FAERS Safety Report 7116152-9 (Version None)
Quarter: 2010Q4

REPORT INFORMATION
  Report Type: 
  Country: None (occurrence: None)
  Receive Date: 20101122
  Receipt Date: 20101112
  Transmission Date: 20110411
  Serious: Yes (Other)
  Sender: FDA-Public Use
  Company Number: US-AMGEN-USASP2010005010

PATIENT

DRUGS (2)
  1. ENBREL [Suspect]
     Indication: RHEUMATOID ARTHRITIS
     Dosage: 50 MG, QWK
     Dates: start: 19991201
  2. ENBREL [Suspect]
     Dosage: 50 MG, QWK
     Dates: start: 20060101

REACTIONS (3)
  - INJECTION SITE ERYTHEMA [None]
  - INJECTION SITE WARMTH [None]
  - SKIN CANCER [None]
